FAERS Safety Report 7722661-1 (Version None)
Quarter: 2011Q3

REPORT INFORMATION
  Report Type: 
  Country: None (occurrence: None)
  Receive Date: 20110831
  Receipt Date: 20110822
  Transmission Date: 20111222
  Serious: Yes (Other)
  Sender: FDA-Public Use
  Company Number: US-RB-031709-11

PATIENT
  Age: 50 Year
  Sex: Female

DRUGS (3)
  1. SUBOXONE [Suspect]
     Indication: DRUG DEPENDENCE
     Route: 060
     Dates: start: 20101204
  2. SUBOXONE [Suspect]
     Dosage: 2 MG DAILY TO CRUMBS DAILY AND STOPPED.
     Route: 060
     Dates: end: 20110819
  3. XANAX [Concomitant]
     Indication: ANXIETY
     Dosage: ^5 MG PRN (AS NEEDED)^
     Route: 065

REACTIONS (4)
  - RESTLESS LEGS SYNDROME [None]
  - SUICIDAL IDEATION [None]
  - DRUG WITHDRAWAL SYNDROME [None]
  - INSOMNIA [None]
